FAERS Safety Report 20249289 (Version 3)
Quarter: 2022Q1

REPORT INFORMATION
  Report Type: Spontaneous
  Country: JP (occurrence: JP)
  Receive Date: 20211229
  Receipt Date: 20220210
  Transmission Date: 20220423
  Serious: Yes (Life-Threatening)
  Sender: FDA-Public Use
  Company Number: JP-CELGENE-JPN-20211207915

PATIENT
  Age: 7 Decade
  Sex: Male

DRUGS (2)
  1. ABRAXANE [Suspect]
     Active Substance: PACLITAXEL
     Indication: Non-small cell lung cancer
     Route: 041
  2. CARBOPLATIN [Concomitant]
     Active Substance: CARBOPLATIN
     Indication: Non-small cell lung cancer
     Route: 041

REACTIONS (1)
  - Bronchial fistula [Recovering/Resolving]
